FAERS Safety Report 9226453 (Version 2)
Quarter: 2013Q2

REPORT INFORMATION
  Report Type: Spontaneous
  Country: US (occurrence: US)
  Receive Date: 20130411
  Receipt Date: 20130419
  Transmission Date: 20140414
  Serious: No
  Sender: FDA-Public Use
  Company Number: US-009507513-1304USA004085

PATIENT
  Age: 67 Year
  Sex: Female

DRUGS (10)
  1. ASMANEX TWISTHALER [Suspect]
     Indication: ASTHMA
     Dosage: UNK
     Route: 055
  2. ALLEGRA [Concomitant]
  3. PEPCID [Concomitant]
     Route: 048
  4. MOBIC [Concomitant]
  5. TOPAMAX [Concomitant]
  6. BUPROPION HYDROCHLORIDE [Concomitant]
  7. PROZAC [Concomitant]
  8. TRIAMTERENE [Concomitant]
  9. GABAPENTIN [Concomitant]
  10. NEXIUM [Concomitant]

REACTIONS (4)
  - Wheezing [Not Recovered/Not Resolved]
  - Drug dose omission [Unknown]
  - Drug dose omission [Unknown]
  - Product quality issue [Unknown]
